FAERS Safety Report 15822029 (Version 1)
Quarter: 2019Q1

REPORT INFORMATION
  Report Type: Spontaneous
  Country: US (occurrence: US)
  Receive Date: 20190114
  Receipt Date: 20190114
  Transmission Date: 20190417
  Serious: No
  Sender: FDA-Public Use
  Company Number: US-PFIZER INC-2019015902

PATIENT
  Age: 42 Year
  Sex: Female

DRUGS (1)
  1. GENOTROPIN MQ [Suspect]
     Active Substance: SOMATROPIN
     Dosage: 0.6 MG, DAILY

REACTIONS (14)
  - Blood thyroid stimulating hormone decreased [Unknown]
  - Alpha hydroxybutyrate dehydrogenase decreased [Unknown]
  - Cortisol increased [Unknown]
  - Sex hormone binding globulin increased [Unknown]
  - Cortisol free urine increased [Unknown]
  - Blood creatinine increased [Unknown]
  - Blood prolactin decreased [Unknown]
  - Blood testosterone decreased [Unknown]
  - Insulin C-peptide decreased [Unknown]
  - Blood triglycerides increased [Unknown]
  - Free fatty acids increased [Unknown]
  - Corticosteroid binding globulin increased [Unknown]
  - C-reactive protein increased [Unknown]
  - Lipoprotein (a) decreased [Unknown]
